APPROVED DRUG PRODUCT: DICLOFENAC SODIUM
Active Ingredient: DICLOFENAC SODIUM
Strength: 2%
Dosage Form/Route: SOLUTION;TOPICAL
Application: A207714 | Product #001 | TE Code: AB
Applicant: APOTEX INC
Approved: May 6, 2022 | RLD: No | RS: No | Type: RX